FAERS Safety Report 13027867 (Version 1)
Quarter: 2016Q4

REPORT INFORMATION
  Report Type: Report from Study
  Country: BR (occurrence: BR)
  Receive Date: 20161214
  Receipt Date: 20161214
  Transmission Date: 20170207
  Serious: Yes (Death, Hospitalization)
  Sender: FDA-Public Use
  Company Number: PHHY2016BR171977

PATIENT
  Age: 90 Year
  Sex: Female

DRUGS (3)
  1. EXELON PATCH [Suspect]
     Active Substance: RIVASTIGMINE
     Indication: DEMENTIA
     Dosage: 5 OR 6 YEARS AGO
     Route: 062
  2. EXELON PATCH [Suspect]
     Active Substance: RIVASTIGMINE
     Indication: AGITATION
     Dosage: (8 YEARS AGO 2007/2008) (FOR 3 MONTHS)
     Route: 062
  3. EXELON PATCH [Suspect]
     Active Substance: RIVASTIGMINE
     Route: 062
     Dates: start: 20160920

REACTIONS (5)
  - Product use issue [Unknown]
  - Pancreatitis [Fatal]
  - Cardiac disorder [Fatal]
  - Respiratory disorder [Fatal]
  - Cerebrovascular accident [Unknown]

NARRATIVE: CASE EVENT DATE: 20160926
